FAERS Safety Report 7264453-6 (Version None)
Quarter: 2011Q1

REPORT INFORMATION
  Report Type: 
  Country: None (occurrence: None)
  Receive Date: 20110131
  Receipt Date: 20110118
  Transmission Date: 20110831
  Serious: Yes (Life-Threatening, Hospitalization)
  Sender: FDA-Public Use
  Company Number: FR-JNJFOC-20110104653

PATIENT
  Age: 32 Year
  Sex: Female

DRUGS (5)
  1. REMICADE [Suspect]
     Route: 042
  2. REMICADE [Suspect]
     Indication: CROHN'S DISEASE
     Dosage: STARTED WITH INDUCTION REGIMEN OF 0, 2 AND 6 WEEKS
     Route: 042
  3. REMICADE [Suspect]
     Dosage: STARTED WITH INDUCTION REGIMEN OF 0, 2 AND 6 WEEKS
     Route: 042
  4. REMICADE [Suspect]
     Dosage: STARTED WITH INDUCTION REGIMEN
     Route: 042
  5. IMUREL [Suspect]
     Indication: ILL-DEFINED DISORDER
     Route: 048

REACTIONS (6)
  - SPIDER NAEVUS [None]
  - HEPATOSPLENIC T-CELL LYMPHOMA [None]
  - HEADACHE [None]
  - CHOLESTASIS [None]
  - CELL DEATH [None]
  - ARTHRALGIA [None]
